FAERS Safety Report 19372048 (Version 2)
Quarter: 2021Q3

REPORT INFORMATION
  Report Type: Spontaneous
  Country: CA (occurrence: CA)
  Receive Date: 20210604
  Receipt Date: 20210716
  Transmission Date: 20211014
  Serious: Yes (Other)
  Sender: FDA-Public Use
  Company Number: CA-CELLTRION INC.-2021CA007555

PATIENT

DRUGS (2)
  1. INFLECTRA [Suspect]
     Active Substance: INFLIXIMAB-DYYB
     Indication: CROHN^S DISEASE
     Dosage: 500 MG 0, 2 AND 6, THEN EVERY 8 WEEKS
     Route: 042
     Dates: start: 20210417, end: 20210417
  2. INFLECTRA [Suspect]
     Active Substance: INFLIXIMAB-DYYB
     Dosage: 500 MG 0, 2 AND 6, THEN EVERY 8 WEEKS
     Route: 042
     Dates: start: 20210508

REACTIONS (2)
  - Heart rate decreased [Unknown]
  - Muscle rupture [Unknown]

NARRATIVE: CASE EVENT DATE: 2021
